FAERS Safety Report 8888429 (Version 3)
Quarter: 2012Q4

REPORT INFORMATION
  Report Type: 
  Country: JP (occurrence: JP)
  Receive Date: 20121106
  Receipt Date: 20121206
  Transmission Date: 20130627
  Serious: Yes (Other)
  Sender: FDA-Public Use
  Company Number: JP-UCBSA-070057

PATIENT
  Age: 35 Year
  Sex: Male
  Weight: 45.6 kg

DRUGS (12)
  1. E KEPPRA [Suspect]
     Indication: EPILEPSY
     Route: 048
     Dates: start: 20121009, end: 20121011
  2. E KEPPRA [Suspect]
     Indication: EPILEPSY
     Route: 048
     Dates: start: 20121012, end: 20121017
  3. E KEPPRA [Suspect]
     Indication: EPILEPSY
     Route: 048
     Dates: start: 20121018, end: 20121022
  4. HYSERENIN [Concomitant]
     Indication: EPILEPSY
     Dosage: DAILY DOSE: 1200MG
     Route: 048
  5. PHENOBAL [Concomitant]
     Indication: EPILEPSY
     Dosage: DAILY DOSE: 50.1MG
     Route: 048
  6. MYSTAN [Concomitant]
     Indication: EPILEPSY
     Dosage: DAILY DOSE: 20.1MG
     Route: 048
  7. RIVOTRIL [Concomitant]
     Indication: EPILEPSY
     Dosage: DAILY DOSE: 1.5MG
     Route: 048
  8. RIVOTRIL [Concomitant]
     Indication: EPILEPSY
     Dosage: DAILY DOSE: 2MG
     Route: 048
  9. KLARICID [Concomitant]
     Indication: RESPIRATORY TRACT INFECTION
     Dosage: DAILY DOSE: 100MG
     Route: 048
  10. ALESION [Concomitant]
     Indication: RHINITIS ALLERGIC
     Dosage: DAILY DOSE: 20MG
     Route: 048
  11. MUCODYNE [Concomitant]
     Indication: RESPIRATORY TRACT INFECTION
     Dosage: DAILY DOSE: 1500MG
     Route: 048
  12. MAGMITT [Concomitant]
     Indication: CONSTIPATION
     Dosage: DAILY DOSE: 1250MG
     Route: 048

REACTIONS (4)
  - Urinary retention [Recovering/Resolving]
  - Dyskinesia [Recovering/Resolving]
  - Urinary tract infection [Recovering/Resolving]
  - Salivary hypersecretion [Recovering/Resolving]
